FAERS Safety Report 7693823-7 (Version None)
Quarter: 2011Q3

REPORT INFORMATION
  Report Type: 
  Country: None (occurrence: None)
  Receive Date: 20110819
  Receipt Date: 20110620
  Transmission Date: 20111222
  Serious: No
  Sender: FDA-Public Use
  Company Number: US-ALLERGAN-1108332US

PATIENT
  Age: 68 Year
  Sex: Female

DRUGS (1)
  1. LASTACAFT [Suspect]
     Indication: DRY EYE
     Dosage: 2 GTT, QD
     Route: 047
     Dates: start: 20110601, end: 20110616

REACTIONS (3)
  - SWELLING FACE [None]
  - PRURITUS [None]
  - ERYTHEMA OF EYELID [None]
